FAERS Safety Report 13916739 (Version 4)
Quarter: 2017Q4

REPORT INFORMATION
  Report Type: Report from Study
  Country: US (occurrence: US)
  Receive Date: 20170829
  Receipt Date: 20171012
  Transmission Date: 20180320
  Serious: Yes (Death, Hospitalization, Other)
  Sender: FDA-Public Use
  Company Number: US-GILEAD-2017-0290720

PATIENT
  Age: 54 Year
  Sex: Female

DRUGS (11)
  1. AMBRISENTAN [Suspect]
     Active Substance: AMBRISENTAN
     Indication: PULMONARY ARTERIAL HYPERTENSION
     Dosage: 10 MG, QD
     Route: 048
     Dates: start: 20130801, end: 20170927
  2. KCL [Concomitant]
     Active Substance: POTASSIUM CHLORIDE
  3. COLCHICINE. [Concomitant]
     Active Substance: COLCHICINE
  4. SILDENAFIL. [Concomitant]
     Active Substance: SILDENAFIL
  5. PREMARIN [Concomitant]
     Active Substance: ESTROGENS, CONJUGATED
  6. WARFARIN [Concomitant]
     Active Substance: WARFARIN
  7. FUROSEMIDE. [Concomitant]
     Active Substance: FUROSEMIDE
  8. METOPROLOL. [Concomitant]
     Active Substance: METOPROLOL
  9. TREPROSTINIL [Concomitant]
     Active Substance: TREPROSTINIL
  10. METOLAZONE. [Concomitant]
     Active Substance: METOLAZONE
  11. SPIRONOLACTONE. [Concomitant]
     Active Substance: SPIRONOLACTONE

REACTIONS (4)
  - Acute kidney injury [Fatal]
  - Respiratory failure [Fatal]
  - Cardiac failure congestive [Unknown]
  - Pulmonary oedema [Unknown]
